FAERS Safety Report 20223799 (Version 1)
Quarter: 2021Q4

REPORT INFORMATION
  Report Type: Spontaneous
  Country: GB (occurrence: GB)
  Receive Date: 20211223
  Receipt Date: 20211223
  Transmission Date: 20220303
  Serious: Yes (Other)
  Sender: FDA-Public Use
  Company Number: None

PATIENT
  Age: 80 Year
  Sex: Male
  Weight: 83 kg

DRUGS (12)
  1. SPIRONOLACTONE [Suspect]
     Active Substance: SPIRONOLACTONE
     Dosage: USE AS DIRECTED
     Dates: start: 20210922
  2. ALLOPURINOL [Concomitant]
     Active Substance: ALLOPURINOL
     Indication: Gout
     Dosage: 1 DF, 1X/DAY
     Dates: start: 20210329
  3. ATORVASTATIN [Concomitant]
     Active Substance: ATORVASTATIN
     Indication: Blood cholesterol increased
     Dosage: 1 DF, 1X/DAY
     Dates: start: 20210329
  4. BISOPROLOL [Concomitant]
     Active Substance: BISOPROLOL
     Indication: Cardiac failure
     Dosage: 1 DF, 1X/DAY
     Dates: start: 20210329
  5. CANDESARTAN [Concomitant]
     Active Substance: CANDESARTAN
     Indication: Hypertension
     Dosage: 1 DF, 1X/DAY
     Dates: start: 20210628
  6. COCODAMOL [Concomitant]
     Active Substance: ACETAMINOPHEN\CODEINE PHOSPHATE
     Dosage: 2 DF, 4X/DAY
     Dates: start: 20210329
  7. DOCUSATE SODIUM [Concomitant]
     Active Substance: DOCUSATE SODIUM
     Dosage: 1 DF, 4X/DAY
     Dates: start: 20210329
  8. EDOXABAN [Concomitant]
     Active Substance: EDOXABAN
     Dosage: 1 DF, 1X/DAY
     Dates: start: 20210329
  9. FERROUS SULFATE [Concomitant]
     Active Substance: FERROUS SULFATE
     Indication: Anaemia
     Dosage: 1 DF, 2X/DAY
     Dates: start: 20210329
  10. FUROSEMIDE [Concomitant]
     Active Substance: FUROSEMIDE
     Dosage: EACH MORNING  (WATER TABLET)
     Dates: start: 20210922
  11. HYDROXOCOBALAMIN [Concomitant]
     Active Substance: HYDROXOCOBALAMIN
     Dosage: 1 DF, EVERY 3 MONTHS
     Dates: start: 20210319
  12. OMEPRAZOLE [Concomitant]
     Active Substance: OMEPRAZOLE
     Indication: Dyspepsia
     Dosage: 1 DF, 1X/DAY
     Dates: start: 20210329

REACTIONS (2)
  - Confusional state [Recovering/Resolving]
  - Aggression [Recovering/Resolving]
